FAERS Safety Report 10381951 (Version 1)
Quarter: 2014Q3

REPORT INFORMATION
  Report Type: Report from Study
  Country: CA (occurrence: CA)
  Receive Date: 20140813
  Receipt Date: 20140813
  Transmission Date: 20150326
  Serious: Yes (Other)
  Sender: FDA-Public Use
  Company Number: CA-BRISTOL-MYERS SQUIBB COMPANY-21290887

PATIENT
  Age: 53 Year
  Sex: Female

DRUGS (9)
  1. VITAMIN D [Concomitant]
     Active Substance: CHOLECALCIFEROL
  2. METHOTREXATE [Concomitant]
     Active Substance: METHOTREXATE
  3. FOLIC ACID. [Concomitant]
     Active Substance: FOLIC ACID
  4. PARIET [Concomitant]
     Active Substance: RABEPRAZOLE SODIUM
  5. ORENCIA [Suspect]
     Active Substance: ABATACEPT
     Indication: RHEUMATOID ARTHRITIS
     Route: 042
     Dates: start: 20120131
  6. PROGESTERONE. [Concomitant]
     Active Substance: PROGESTERONE
  7. ARTHROTEC [Concomitant]
     Active Substance: DICLOFENAC SODIUM\MISOPROSTOL
  8. MULTIVITAMIN [Concomitant]
     Active Substance: VITAMINS
  9. AVAPRO [Concomitant]
     Active Substance: IRBESARTAN

REACTIONS (1)
  - Cataract [Unknown]
